FAERS Safety Report 5306993-2 (Version None)
Quarter: 2007Q2

REPORT INFORMATION
  Report Type: 
  Country: None (occurrence: None)
  Receive Date: 20070425
  Receipt Date: 20070416
  Transmission Date: 20071010
  Serious: Yes (Hospitalization)
  Sender: FDA-Public Use
  Company Number: FR-JNJFOC-20070403598

PATIENT
  Age: 21 Year
  Sex: Female
  Weight: 61 kg

DRUGS (2)
  1. TRICILEST [Suspect]
     Indication: CONTRACEPTION
     Route: 048
     Dates: start: 20061001, end: 20070122
  2. EFFIZINC [Suspect]
     Indication: DRUG USE FOR UNKNOWN INDICATION
     Dates: start: 20061201, end: 20070122

REACTIONS (2)
  - BLOOD POTASSIUM DECREASED [None]
  - HEPATITIS [None]
